FAERS Safety Report 7818133-6 (Version None)
Quarter: 2011Q4

REPORT INFORMATION
  Report Type: 
  Country: None (occurrence: None)
  Receive Date: 20111017
  Receipt Date: 20111004
  Transmission Date: 20120403
  Serious: Yes (Hospitalization)
  Sender: FDA-Public Use
  Company Number: JP-ROCHE-755767

PATIENT
  Sex: Male
  Weight: 29.3 kg

DRUGS (35)
  1. PREDNISOLONE [Suspect]
     Route: 048
     Dates: start: 20101217, end: 20110103
  2. PROGRAF [Concomitant]
     Route: 048
     Dates: start: 20101214, end: 20101219
  3. MUCODYNE [Concomitant]
     Route: 048
  4. CEFAZOLIN SODIUM [Concomitant]
     Route: 042
     Dates: start: 20081015, end: 20081017
  5. FAMOTIDINE [Concomitant]
     Route: 042
     Dates: start: 20081016, end: 20081024
  6. EMPYNASE P [Concomitant]
     Route: 048
     Dates: start: 20101124, end: 20110103
  7. ACTEMRA [Suspect]
     Route: 041
  8. FAMOTIDINE [Concomitant]
     Route: 048
  9. MUCODYNE [Concomitant]
     Route: 048
  10. LEFTOSE [Concomitant]
     Route: 048
  11. ENALAPRIL MALEATE [Concomitant]
     Dosage: RENIVACE (ENALAPRIL MALEATE)
     Route: 048
  12. METOCLOPRAMIDE [Concomitant]
     Route: 042
     Dates: start: 20081016, end: 20081024
  13. SULFAMETHOXAZOLE AND TRIMETHOPRIM [Concomitant]
     Route: 048
     Dates: start: 20101124, end: 20110103
  14. PROGRAF [Concomitant]
     Route: 048
  15. ACTEMRA [Suspect]
     Route: 041
     Dates: start: 20091001, end: 20091123
  16. ERYTHROCIN LACTOBIONATE [Concomitant]
     Dosage: ERYTHROCIN (ERYTHROMYCIN STEARATE)
     Route: 048
  17. LEFTOSE [Concomitant]
     Dosage: LEFTOSE: LYSOZYME HYDROCHLORIDE
     Route: 048
  18. MAGMITT [Concomitant]
     Route: 048
     Dates: start: 20081002, end: 20081125
  19. VITAMINS AND MINERALS [Concomitant]
     Route: 048
     Dates: start: 20081125, end: 20090615
  20. TACROLIMUS [Concomitant]
  21. ACTEMRA [Suspect]
     Indication: JUVENILE ARTHRITIS
     Route: 041
     Dates: start: 20070523, end: 20081107
  22. ACTEMRA [Suspect]
     Route: 041
     Dates: start: 20081125, end: 20090511
  23. ACTEMRA [Suspect]
     Route: 041
     Dates: start: 20090525, end: 20090930
  24. PREDNISOLONE [Suspect]
     Route: 048
     Dates: start: 20101214, end: 20101216
  25. MUCODYNE [Concomitant]
     Route: 048
  26. FERROUS SULFATE TAB [Concomitant]
     Route: 048
     Dates: start: 20080818, end: 20081125
  27. CLARITHROMYCIN [Concomitant]
     Route: 048
  28. PREDNISOLONE [Suspect]
     Indication: JUVENILE ARTHRITIS
     Dosage: NOTE: DOSAGE IS UNCERTAIN
     Route: 048
  29. VOLTAREN [Suspect]
     Indication: JUVENILE ARTHRITIS
     Route: 048
  30. GASMOTIN [Concomitant]
     Dosage: GASMOTIN (MOSAPRIDE CITRATE).
     Route: 048
  31. ENALAPRIL MALEATE [Concomitant]
     Route: 048
  32. VOLTAREN [Suspect]
     Indication: JUVENILE ARTHRITIS
     Route: 048
  33. ENALAPRIL MALEATE [Concomitant]
     Route: 048
     Dates: start: 20090615, end: 20110209
  34. CARVEDILOL [Concomitant]
     Route: 048
     Dates: start: 20090511, end: 20090615
  35. VOLTAREN [Concomitant]
     Route: 048

REACTIONS (5)
  - DUODENAL PERFORATION [None]
  - INFECTIOUS PERITONITIS [None]
  - DUODENAL ULCER [None]
  - JUVENILE ARTHRITIS [None]
  - HYPOGLYCAEMIA [None]
